FAERS Safety Report 6698443-9 (Version None)
Quarter: 2010Q2

REPORT INFORMATION
  Report Type: 
  Country: None (occurrence: None)
  Receive Date: 20100427
  Receipt Date: 20100420
  Transmission Date: 20101027
  Serious: Yes (Other)
  Sender: FDA-Public Use
  Company Number: TW-ROCHE-698425

PATIENT
  Sex: Male

DRUGS (2)
  1. MIRCERA [Suspect]
     Dosage: DOSE:100MCG,FREQUENCY:QM
     Route: 042
     Dates: start: 20100401
  2. RECORMON [Suspect]
     Route: 042
     Dates: end: 20100401

REACTIONS (1)
  - HAEMATOCRIT ABNORMAL [None]
